FAERS Safety Report 8948368 (Version 1)
Quarter: 2012Q4

REPORT INFORMATION
  Report Type: Spontaneous
  Country: US (occurrence: None)
  Receive Date: 20121126
  Receipt Date: 20121126
  Transmission Date: 20130627
  Serious: Yes (Other)
  Sender: FDA-Public Use
  Company Number: 2012AP004001

PATIENT
  Age: 49 Year
  Sex: Female

DRUGS (1)
  1. LEFLUNOMIDE [Suspect]
     Indication: REACTIVE ARTHRITIS

REACTIONS (3)
  - Weight decreased [None]
  - Clostridium test positive [None]
  - Colitis [None]
